FAERS Safety Report 4722450-6 (Version None)
Quarter: 2005Q3

REPORT INFORMATION
  Report Type: 
  Country: None (occurrence: None)
  Receive Date: 20050722
  Receipt Date: 20050425
  Transmission Date: 20060218
  Serious: No
  Sender: FDA-Public Use
  Company Number: US-GLAXOSMITHKLINE-A0555590A

PATIENT
  Age: 56 Year
  Sex: Male

DRUGS (10)
  1. AVANDIA [Suspect]
     Dosage: 4MG TWICE PER DAY
     Route: 048
     Dates: start: 20050421
  2. LIPITOR [Concomitant]
  3. LISINOPRIL [Concomitant]
  4. VITAMIN MULTI [Concomitant]
  5. GARLIC [Concomitant]
  6. LECITHIN [Concomitant]
  7. ASCORBIC ACID [Concomitant]
  8. VITAMIN E [Concomitant]
  9. SAWPALMETTO [Concomitant]
  10. PYGEUM AFRICANUM [Concomitant]

REACTIONS (2)
  - ANXIETY [None]
  - DYSPNOEA [None]
